FAERS Safety Report 10469751 (Version 1)
Quarter: 2014Q3

REPORT INFORMATION
  Report Type: Spontaneous
  Country: US (occurrence: None)
  Receive Date: 20140922
  Receipt Date: 20140922
  Transmission Date: 20150326
  Serious: No
  Sender: FDA-Public Use
  Company Number: None

PATIENT
  Age: 77 Year
  Sex: Female
  Weight: 62.14 kg

DRUGS (2)
  1. WELCHOL [Suspect]
     Active Substance: COLESEVELAM HYDROCHLORIDE
     Indication: BLOOD CHOLESTEROL INCREASED
     Dosage: 1 OACKET 3.75G, ONCE DAILY, TAKEN BY MOUTH
     Route: 048
     Dates: start: 20140918, end: 20140921
  2. WELCHOL [Suspect]
     Active Substance: COLESEVELAM HYDROCHLORIDE
     Indication: LOW DENSITY LIPOPROTEIN INCREASED
     Dosage: 1 OACKET 3.75G, ONCE DAILY, TAKEN BY MOUTH
     Route: 048
     Dates: start: 20140918, end: 20140921

REACTIONS (4)
  - Vomiting [None]
  - Malaise [None]
  - Headache [None]
  - Diarrhoea [None]

NARRATIVE: CASE EVENT DATE: 20140918
